FAERS Safety Report 15158419 (Version 2)
Quarter: 2018Q3

REPORT INFORMATION
  Report Type: Report from Study
  Country: KR (occurrence: KR)
  Receive Date: 20180718
  Receipt Date: 20180803
  Transmission Date: 20181010
  Serious: Yes (Hospitalization)
  Sender: FDA-Public Use
  Company Number: KR-SA-2018SA114978

PATIENT
  Age: 67 Year
  Sex: Male

DRUGS (6)
  1. INSULIN GLARGINE [Suspect]
     Active Substance: INSULIN GLARGINE
     Dosage: 18 UNK
     Route: 058
     Dates: start: 201804, end: 201805
  2. INSULIN GLARGINE [Suspect]
     Active Substance: INSULIN GLARGINE
     Dosage: 12 UNK
     Route: 058
     Dates: start: 201805, end: 201807
  3. INSULIN GLARGINE [Suspect]
     Active Substance: INSULIN GLARGINE
     Indication: DIABETES MELLITUS
     Dosage: 20 DF,QD
     Route: 058
     Dates: start: 20180409, end: 20180418
  4. INSULIN GLARGINE [Suspect]
     Active Substance: INSULIN GLARGINE
     Dosage: 18 DF,QD
     Route: 058
     Dates: start: 20180419, end: 201804
  5. INSULIN GLARGINE [Suspect]
     Active Substance: INSULIN GLARGINE
     Dosage: 10 UNK
     Route: 058
     Dates: start: 201805, end: 201805
  6. INSULIN GLARGINE [Suspect]
     Active Substance: INSULIN GLARGINE
     Dosage: 20 DF,QD
     Route: 058
     Dates: start: 201804, end: 201804

REACTIONS (8)
  - Blood glucose increased [Not Recovered/Not Resolved]
  - Hyperglycaemia [Recovered/Resolved]
  - Intentional product misuse [Unknown]
  - Arthropathy [Recovered/Resolved]
  - Asthenia [Not Recovered/Not Resolved]
  - Muscular weakness [Recovered/Resolved]
  - Hypoglycaemia [Recovered/Resolved]
  - Hypoglycaemia [Recovered/Resolved]

NARRATIVE: CASE EVENT DATE: 2018
